FAERS Safety Report 19796227 (Version 2)
Quarter: 2024Q3

REPORT INFORMATION
  Report Type: Spontaneous
  Country: JP (occurrence: JP)
  Receive Date: 20210907
  Receipt Date: 20240903
  Transmission Date: 20241017
  Serious: Yes (Other)
  Sender: ELI LILLY AND CO
  Company Number: JP-MERCK HEALTHCARE KGAA-9261501

PATIENT
  Age: 70 Year
  Sex: Male

DRUGS (9)
  1. ERBITUX [Suspect]
     Active Substance: CETUXIMAB
     Indication: Oropharyngeal cancer stage II
     Dosage: 400 MG/M2, UNKNOWN
     Route: 041
  2. ERBITUX [Suspect]
     Active Substance: CETUXIMAB
     Dosage: 250 MG/M2, UNKNOWN
     Route: 041
  3. PACLITAXEL [Concomitant]
     Active Substance: PACLITAXEL
     Indication: Oropharyngeal cancer stage II
     Dosage: 100 MG/M2, UNKNOWN(DRIP INFUSION OVER 1 HOUR)
  4. CARBOPLATIN [Concomitant]
     Active Substance: CARBOPLATIN
     Indication: Oropharyngeal cancer stage II
     Dosage: 2.0 AREA UNDER THE CURVE (AUC)DRIP INFUSION OVER 1 HOUR
  5. DEXCHLORPHENIRAMINE [Concomitant]
     Active Substance: DEXCHLORPHENIRAMINE
     Indication: Product used for unknown indication
     Dosage: UNK UNK, UNKNOWN(DRIP INFUSION OVER 15 MINUTES)
  6. FAMOTIDINE [Concomitant]
     Active Substance: FAMOTIDINE
     Indication: Product used for unknown indication
     Dosage: UNK UNK, UNKNOWN(DRIP INFUSION OVER 15 MINUTES)
  7. GRANISETRON [Concomitant]
     Active Substance: GRANISETRON
     Indication: Product used for unknown indication
     Dosage: UNK UNK, UNKNOWN(DRIP INFUSION OVER 15 MINUTES)
  8. DEXAMETHASONE [Concomitant]
     Active Substance: DEXAMETHASONE
     Indication: Product used for unknown indication
     Dosage: UNK UNK, UNKNOWN(DRIP INFUSION OVER 15 MINUTES)
  9. MINOCYCLINE HYDROCHLORIDE [Concomitant]
     Active Substance: MINOCYCLINE HYDROCHLORIDE
     Indication: Prophylaxis
     Dosage: 100 MG, UNKNOWN

REACTIONS (2)
  - Febrile neutropenia [Unknown]
  - Off label use [Unknown]
